FAERS Safety Report 4436234-X (Version None)
Quarter: 2004Q3

REPORT INFORMATION
  Report Type: 
  Country: None (occurrence: None)
  Receive Date: 20040830
  Receipt Date: 20040603
  Transmission Date: 20050211
  Serious: Yes (Disabling, Other)
  Sender: FDA-Public Use
  Company Number: US-BRISTOL-MYERS SQUIBB COMPANY-12605655

PATIENT
  Age: 61 Year
  Sex: Male
  Weight: 89 kg

DRUGS (14)
  1. ERBITUX [Suspect]
     Indication: COLON CANCER
     Dosage: INTERRUPTED ON 01-JUN-2004
     Route: 042
     Dates: start: 20040524, end: 20040524
  2. BENADRYL [Concomitant]
     Indication: PREMEDICATION
     Route: 042
     Dates: start: 20040524, end: 20040524
  3. DECADRON [Concomitant]
     Indication: PREMEDICATION
     Route: 042
     Dates: start: 20040524, end: 20040524
  4. KYTRIL [Concomitant]
     Indication: PREMEDICATION
     Route: 042
     Dates: start: 20040524, end: 20040524
  5. ANTABUSE [Concomitant]
  6. ATROPINE [Concomitant]
     Route: 042
     Dates: start: 20040524, end: 20040524
  7. CAMPTOSAR [Concomitant]
     Route: 042
     Dates: start: 20040524, end: 20040524
  8. COLACE [Concomitant]
  9. COMPAZINE [Concomitant]
  10. DETROL [Concomitant]
  11. MAXZIDE [Concomitant]
  12. ZEBETA [Concomitant]
  13. ZOFRAN [Concomitant]
  14. ZOLOFT [Concomitant]

REACTIONS (2)
  - ALOPECIA [None]
  - DERMATITIS ACNEIFORM [None]
